FAERS Safety Report 4538483-9 (Version None)
Quarter: 2004Q4

REPORT INFORMATION
  Report Type: 
  Country: None (occurrence: None)
  Receive Date: 20041221
  Receipt Date: 20041208
  Transmission Date: 20050328
  Serious: Yes (Hospitalization)
  Sender: FDA-Public Use
  Company Number: FRP04000962

PATIENT
  Age: 71 Year
  Sex: Female
  Weight: 61 kg

DRUGS (5)
  1. ACTONEL [Suspect]
     Indication: OSTEOPOROSIS
     Dosage: 35 MG, 1/WEEK, ORAL
     Route: 048
     Dates: start: 20040216, end: 20040626
  2. LORAZEPAM [Concomitant]
  3. ACETAMINOPHEN [Concomitant]
  4. CALTRATE + D (COLECALCIFEROL, CALCIUM CARBONATE) [Concomitant]
  5. ZOCOR [Concomitant]

REACTIONS (4)
  - DYSPHAGIA [None]
  - FOREIGN BODY TRAUMA [None]
  - RHINORRHOEA [None]
  - SALIVARY HYPERSECRETION [None]
